FAERS Safety Report 22257861 (Version 5)
Quarter: 2024Q2

REPORT INFORMATION
  Report Type: Report from Study
  Country: US (occurrence: US)
  Receive Date: 20230427
  Receipt Date: 20240418
  Transmission Date: 20240716
  Serious: Yes (Death, Congenital Anomaly)
  Sender: FDA-Public Use
  Company Number: US-UCBSA-2023021535

PATIENT

DRUGS (12)
  1. CERTOLIZUMAB PEGOL [Suspect]
     Active Substance: CERTOLIZUMAB PEGOL
     Indication: Rheumatoid arthritis
     Dosage: 400 MILLIGRAM, MONTHLY (QM)
     Route: 064
     Dates: start: 2022, end: 20220727
  2. CAFFEINE [Concomitant]
     Active Substance: CAFFEINE
     Indication: Product used for unknown indication
     Dosage: 2 SERVINGS 1.5 WEEKS
     Route: 064
     Dates: start: 20220424, end: 20220531
  3. MINERALS\VITAMINS [Concomitant]
     Active Substance: MINERALS\VITAMINS
     Indication: Product used for unknown indication
     Dosage: 1 PILL 1 DAY
     Route: 064
     Dates: start: 20220523, end: 20220727
  4. PROMETHAZINE [Concomitant]
     Active Substance: PROMETHAZINE HYDROCHLORIDE
     Indication: Morning sickness
     Dosage: 12.5 MILLIGRAM , 1.5 DAY
     Route: 064
     Dates: start: 20220605, end: 20220608
  5. TYLENOL [Concomitant]
     Active Substance: ACETAMINOPHEN
     Indication: Headache
     Dosage: 650 MILLIGRAM, 2 TOTAL
     Route: 064
     Dates: start: 20220424, end: 20220617
  6. TYLENOL [Concomitant]
     Active Substance: ACETAMINOPHEN
     Indication: Arthralgia
  7. DOXYLAMINE SUCCINATE [Concomitant]
     Active Substance: DOXYLAMINE SUCCINATE
     Indication: Morning sickness
     Dosage: 25 MILLIGRAM, ONCE DAILY (QD)
     Route: 064
     Dates: start: 20220609, end: 20220614
  8. VITAMIN B6 [Concomitant]
     Active Substance: PYRIDOXINE HYDROCHLORIDE
     Indication: Pregnancy
     Dosage: 25 MILLIGRAM, 2X/DAY (BID)
     Route: 064
     Dates: start: 20220612, end: 20220727
  9. VITAMIN B6 [Concomitant]
     Active Substance: PYRIDOXINE HYDROCHLORIDE
     Indication: Morning sickness
  10. ZOFRAN [Concomitant]
     Active Substance: ONDANSETRON HYDROCHLORIDE
     Indication: Nausea
     Dosage: 1 MILLIGRAM. 2.5 DAY
     Route: 064
     Dates: start: 20220624, end: 20220725
  11. MODERNA COVID-19 VACCINE [Concomitant]
     Active Substance: ELASOMERAN
     Indication: Product used for unknown indication
     Dosage: DOSE 1, 1 SHOT ONE DAY
     Dates: start: 20210325, end: 20210325
  12. MODERNA COVID-19 VACCINE [Concomitant]
     Active Substance: ELASOMERAN
     Dosage: DOSE 2, 1 SHOT ONE DAY
     Dates: start: 20210422, end: 20210422

REACTIONS (3)
  - Turner^s syndrome [Fatal]
  - Maternal exposure before pregnancy [Unknown]
  - Maternal exposure during pregnancy [Unknown]

NARRATIVE: CASE EVENT DATE: 20220101
